FAERS Safety Report 24098245 (Version 2)
Quarter: 2024Q3

REPORT INFORMATION
  Report Type: Spontaneous
  Country: US (occurrence: US)
  Receive Date: 20240716
  Receipt Date: 20240802
  Transmission Date: 20241016
  Serious: Yes (Hospitalization)
  Sender: TEVA
  Company Number: US-TEVA-VS-3217679

PATIENT
  Age: 76 Year
  Sex: Female

DRUGS (3)
  1. METFORMIN [Suspect]
     Active Substance: METFORMIN HYDROCHLORIDE
     Indication: Glucose tolerance impaired
     Route: 065
  2. LINAGLIPTIN [Suspect]
     Active Substance: LINAGLIPTIN
     Indication: Glucose tolerance impaired
     Route: 065
  3. INSULIN GLARGINE [Concomitant]
     Active Substance: INSULIN GLARGINE
     Indication: Glucose tolerance impaired
     Dosage: 8 UNITS
     Route: 065

REACTIONS (4)
  - Hyponatraemia [Recovering/Resolving]
  - Vomiting [Unknown]
  - Nausea [Unknown]
  - Hypovolaemia [Unknown]
